FAERS Safety Report 15229742 (Version 1)
Quarter: 2018Q3

REPORT INFORMATION
  Report Type: Spontaneous
  Country: US (occurrence: US)
  Receive Date: 20180802
  Receipt Date: 20180802
  Transmission Date: 20181010
  Serious: Yes (Other)
  Sender: FDA-Public Use
  Company Number: US-ACCORD-061794

PATIENT
  Age: 68 Year
  Sex: Female
  Weight: 92.53 kg

DRUGS (33)
  1. NEOSAR [Suspect]
     Active Substance: CYCLOPHOSPHAMIDE
     Indication: INVASIVE DUCTAL BREAST CARCINOMA
     Dosage: ALSO RECEIVED 1220 MG FROM 18?FEB?2014.
     Dates: start: 20140218, end: 20140422
  2. METOPROLOL. [Concomitant]
     Active Substance: METOPROLOL
     Dosage: STRENGTH: 50 MG?TWICE PER DAY
     Dates: start: 201001
  3. GLIPIZIDE. [Concomitant]
     Active Substance: GLIPIZIDE
     Dosage: STRENGTH: 5 MG
     Dates: start: 201501
  4. EMLA [Concomitant]
     Active Substance: LIDOCAINE\PRILOCAINE
     Dates: start: 20140204
  5. ALOXI [Concomitant]
     Active Substance: PALONOSETRON HYDROCHLORIDE
     Dosage: IV DAILY PUSH FOR 1 DAY
     Route: 042
     Dates: start: 20140218, end: 20140422
  6. LATANOPROST. [Concomitant]
     Active Substance: LATANOPROST
     Dosage: STRENGTH: 0.005%
     Dates: start: 200801
  7. TIZANIDINE. [Concomitant]
     Active Substance: TIZANIDINE
     Dosage: STRENGTH: 4 MG
     Dates: start: 2016
  8. CALCITRIOL. [Concomitant]
     Active Substance: CALCITRIOL
     Dosage: STRENGTH: 0.5 MCG
     Dates: start: 201701
  9. ONDANSETRON/ONDANSETRON HYDROCHLORIDE [Concomitant]
     Dates: start: 20140204
  10. DOCETAXEL ACCORD [Suspect]
     Active Substance: DOCETAXEL
     Indication: INVASIVE DUCTAL BREAST CARCINOMA
     Dosage: 150 MG (AT 75 MG/M2)?4 CYCLES EVERY THREE WEEKS
     Route: 042
     Dates: start: 20140218, end: 20140422
  11. LOSARTAN. [Concomitant]
     Active Substance: LOSARTAN
     Dosage: STRENGTH: 100 MG?ALSO RECEIVED 24?FEB?2016
     Dates: start: 198701
  12. CINNAMOMUM VERUM BARK [Concomitant]
     Active Substance: CINNAMON
     Route: 048
     Dates: start: 20150811
  13. LETROZOLE. [Concomitant]
     Active Substance: LETROZOLE
     Dosage: STRENGTH: 2.5 MG
     Dates: start: 201501
  14. DEXAMETHASONE. [Concomitant]
     Active Substance: DEXAMETHASONE
     Dosage: 10 MG IV DAILY PUSH FOR 1 DAY
     Route: 042
     Dates: start: 20140218, end: 20140422
  15. SODIUM CHLORIDE. [Concomitant]
     Active Substance: SODIUM CHLORIDE
  16. CYTOXAN [Suspect]
     Active Substance: CYCLOPHOSPHAMIDE
     Indication: INVASIVE DUCTAL BREAST CARCINOMA
     Dosage: 1240 MG (600 MG/M2) IV DAILY SHORT OVER 30 MIN FOR 1 DAY IN NS 100 ML
     Route: 042
     Dates: start: 20140218, end: 20140422
  17. NEULASTA [Suspect]
     Active Substance: PEGFILGRASTIM
     Indication: INVASIVE DUCTAL BREAST CARCINOMA
     Route: 058
     Dates: start: 20140219, end: 20140423
  18. METFORMIN [Concomitant]
     Active Substance: METFORMIN HYDROCHLORIDE
     Dosage: STRENGTH: 500 MG?FOUR TABS ONCE PER DAY?ALSO RECEIVED FROM 24?FEB?2016
     Dates: start: 199701
  19. PRAVASTATIN. [Concomitant]
     Active Substance: PRAVASTATIN
     Dosage: STRENGTH: 80 MG?ALSO RECEIVED FROM 24?FEB?2016
     Dates: start: 200701
  20. FEMARA [Concomitant]
     Active Substance: LETROZOLE
     Dosage: 1 PO ?STRENGTH: 2.5 MG
     Route: 048
     Dates: start: 20140715, end: 20150210
  21. TRADJENTA [Concomitant]
     Active Substance: LINAGLIPTIN
     Route: 048
     Dates: start: 20150811
  22. SODIUM CHLORIDE. [Concomitant]
     Active Substance: SODIUM CHLORIDE
     Dates: start: 20140218, end: 20140422
  23. ALPRAZOLAM. [Concomitant]
     Active Substance: ALPRAZOLAM
     Dosage: STRENGTH: 0.25 MG
     Route: 048
     Dates: start: 199901
  24. FUROSEMIDE. [Concomitant]
     Active Substance: FUROSEMIDE
     Dosage: STRENGTH: 40 MG
     Dates: start: 201401
  25. CYANOCOBALAMIN. [Concomitant]
     Active Substance: CYANOCOBALAMIN
     Dosage: 5000 MCG, 100 MCG
     Route: 060
     Dates: start: 20160224
  26. CHROMIUM [Concomitant]
     Active Substance: CHROMIC CHLORIDE\CHROMIUM
     Route: 048
  27. AMLODIPINE [Concomitant]
     Active Substance: AMLODIPINE BESYLATE
     Dosage: ONCE PER DAY?STRENGTH: 5 MG
     Dates: start: 201201
  28. AMLODIPINE [Concomitant]
     Active Substance: AMLODIPINE BESYLATE
     Route: 048
     Dates: start: 20150811
  29. PROMETHAZINE [Concomitant]
     Active Substance: PROMETHAZINE\PROMETHAZINE HYDROCHLORIDE
     Dates: start: 20140204
  30. LEVOTHYROXINE. [Concomitant]
     Active Substance: LEVOTHYROXINE
     Dosage: STRENGTH: 0.100 MG
     Dates: start: 201701
  31. ERGOCALCIFEROL. [Concomitant]
     Active Substance: ERGOCALCIFEROL
     Dosage: STRENGTH: 400 IU
     Dates: start: 201701
  32. PARACETAMOL [Concomitant]
     Active Substance: ACETAMINOPHEN
     Route: 048
     Dates: start: 20150811
  33. COLECALCIFEROL [Concomitant]
     Active Substance: CHOLECALCIFEROL
     Route: 048
     Dates: start: 20150811

REACTIONS (1)
  - Alopecia [Not Recovered/Not Resolved]

NARRATIVE: CASE EVENT DATE: 20140501
